FAERS Safety Report 7423246-7 (Version None)
Quarter: 2011Q2

REPORT INFORMATION
  Report Type: 
  Country: None (occurrence: None)
  Receive Date: 20110419
  Receipt Date: 20110411
  Transmission Date: 20111010
  Serious: Yes (Hospitalization, Disabling)
  Sender: FDA-Public Use
  Company Number: US-ROCHE-762250

PATIENT
  Sex: Female
  Weight: 69.4 kg

DRUGS (3)
  1. HERCEPTIN [Suspect]
     Indication: BREAST CANCER
     Dosage: LOADING DOSE, 90 MINUTES FOR LOADING, INFUSION DURATION: 30 MINUTES, FORM: INFUSION
     Route: 042
     Dates: start: 20100911
  2. HERCEPTIN [Suspect]
     Dosage: STANDARD WEEKLY DOSE
     Route: 042
     Dates: end: 20110102
  3. TAXOL [Suspect]
     Route: 065
     Dates: start: 20100911, end: 20110102

REACTIONS (5)
  - INTRACRANIAL PRESSURE INCREASED [None]
  - HEADACHE [None]
  - COMPLEX REGIONAL PAIN SYNDROME [None]
  - BENIGN INTRACRANIAL HYPERTENSION [None]
  - NEUROPATHY PERIPHERAL [None]
